FAERS Safety Report 16444964 (Version 1)
Quarter: 2019Q2

REPORT INFORMATION
  Report Type: Spontaneous
  Country: US (occurrence: US)
  Receive Date: 20190618
  Receipt Date: 20190618
  Transmission Date: 20190711
  Serious: No
  Sender: FDA-Public Use
  Company Number: US-IGSA-SR10007498

PATIENT
  Age: 54 Year
  Sex: Male
  Weight: 98 kg

DRUGS (3)
  1. RABIES VACCINE [Suspect]
     Active Substance: RABIES VACCINE
     Indication: ANIMAL BITE
     Dosage: 1 ML, UNK
     Route: 030
     Dates: start: 20181123, end: 20181123
  2. HYPERRAB S/D [Suspect]
     Active Substance: HUMAN RABIES VIRUS IMMUNE GLOBULIN
     Indication: ANIMAL BITE
     Dosage: 2000 IU, UNK
     Route: 030
     Dates: start: 20181123, end: 20181123
  3. RABIES VACCINE [Suspect]
     Active Substance: RABIES VACCINE
     Indication: ANIMAL BITE
     Dosage: 1 ML, UNK
     Route: 030
     Dates: start: 20181126, end: 20181126

REACTIONS (8)
  - Erythema [Recovering/Resolving]
  - Urticaria [Recovering/Resolving]
  - Swollen tongue [Recovering/Resolving]
  - Influenza like illness [Recovering/Resolving]
  - Anaphylactoid reaction [Recovering/Resolving]
  - Rash [Recovering/Resolving]
  - Tinnitus [Recovering/Resolving]
  - Lip swelling [Recovering/Resolving]

NARRATIVE: CASE EVENT DATE: 20181124
